FAERS Safety Report 13259502 (Version 4)
Quarter: 2017Q1

REPORT INFORMATION
  Report Type: Report from Study
  Country: CO (occurrence: CO)
  Receive Date: 20170222
  Receipt Date: 20170329
  Transmission Date: 20170428
  Serious: Yes (Death, Hospitalization, Other)
  Sender: FDA-Public Use
  Company Number: PHHY2017CO016418

PATIENT
  Age: 42 Year
  Sex: Female
  Weight: 80 kg

DRUGS (4)
  1. AZITHROMYCIN ANHYDROUS. [Concomitant]
     Active Substance: AZITHROMYCIN ANHYDROUS
     Indication: PRODUCT USED FOR UNKNOWN INDICATION
     Route: 065
  2. REVOLADE [Suspect]
     Active Substance: ELTROMBOPAG
     Dosage: 75 MG, QD
     Route: 048
  3. REVOLADE [Suspect]
     Active Substance: ELTROMBOPAG
     Indication: IMMUNE THROMBOCYTOPENIC PURPURA
     Dosage: 50 MG, QD
     Route: 048
     Dates: start: 20170116
  4. ACETAMINOPHEN. [Concomitant]
     Active Substance: ACETAMINOPHEN
     Indication: PRODUCT USED FOR UNKNOWN INDICATION
     Route: 065

REACTIONS (13)
  - Haemoglobin decreased [Unknown]
  - Platelet count decreased [Unknown]
  - Mouth haemorrhage [Unknown]
  - Paralysis [Unknown]
  - Migraine [Unknown]
  - Headache [Unknown]
  - Cardiac arrest [Fatal]
  - Petechiae [Unknown]
  - Oropharyngeal pain [Unknown]
  - Pharyngitis [Unknown]
  - Malaise [Unknown]
  - Pituitary-dependent Cushing^s syndrome [Unknown]
  - Tonsillitis [Unknown]

NARRATIVE: CASE EVENT DATE: 20170124
